FAERS Safety Report 7247144-7 (Version None)
Quarter: 2011Q1

REPORT INFORMATION
  Report Type: 
  Country: None (occurrence: None)
  Receive Date: 20110127
  Receipt Date: 20100913
  Transmission Date: 20110831
  Serious: No
  Sender: FDA-Public Use
  Company Number: US-BAUSCH-2010BL005167

PATIENT
  Age: 88 Year
  Sex: Male

DRUGS (3)
  1. CLARITIN                                /USA/ [Concomitant]
     Indication: HYPERSENSITIVITY
  2. ALAWAY [Suspect]
     Indication: EYE PRURITUS
     Route: 047
     Dates: start: 20100911, end: 20100911
  3. ALAWAY [Suspect]
     Indication: LACRIMATION INCREASED
     Route: 047
     Dates: start: 20100911, end: 20100911

REACTIONS (3)
  - EYE PAIN [None]
  - LACRIMATION INCREASED [None]
  - EYE IRRITATION [None]
